FAERS Safety Report 19248240 (Version 1)
Quarter: 2021Q2

REPORT INFORMATION
  Report Type: Spontaneous
  Country: US (occurrence: US)
  Receive Date: 20210512
  Receipt Date: 20210512
  Transmission Date: 20210717
  Serious: Yes (Hospitalization)
  Sender: FDA-Public Use
  Company Number: US-MYLANLABS-2021M1027699

PATIENT
  Age: 2 Year
  Sex: Male

DRUGS (4)
  1. PROPRANOLOL [Suspect]
     Active Substance: PROPRANOLOL HYDROCHLORIDE
     Indication: SUPRAVENTRICULAR TACHYCARDIA
     Dosage: 3 MILLIGRAM/KILOGRAM, QD
     Route: 065
  2. SOTALOL. [Suspect]
     Active Substance: SOTALOL
     Dosage: 173 MILLIGRAM/SQ. METER, QD,DIVIDED INTO THRICE?DAILY DOSES
     Route: 048
  3. SOTALOL. [Suspect]
     Active Substance: SOTALOL
     Indication: SUPRAVENTRICULAR TACHYCARDIA
     Dosage: 165 MILLIGRAM/SQ. METER, QD
     Route: 048
  4. SOTALOL. [Suspect]
     Active Substance: SOTALOL
     Dosage: 200 MILLIGRAM/SQ. METER, QD
     Route: 048

REACTIONS (11)
  - Sinus bradycardia [Recovered/Resolved]
  - Gaze palsy [Recovered/Resolved]
  - Nystagmus [Recovered/Resolved]
  - Hypertonia [Recovered/Resolved]
  - Lethargy [Recovered/Resolved]
  - Hypothermia [Recovered/Resolved]
  - Hypoglycaemia [Recovered/Resolved]
  - Irritability [Recovered/Resolved]
  - Unresponsive to stimuli [Recovered/Resolved]
  - Seizure [Recovered/Resolved]
  - Dyskinesia [Recovered/Resolved]
